FAERS Safety Report 10744300 (Version 2)
Quarter: 2015Q1

REPORT INFORMATION
  Report Type: Spontaneous
  Country: US (occurrence: None)
  Receive Date: 20150126
  Receipt Date: 20150319
  Transmission Date: 20150721
  Serious: Yes (Disabling, Other)
  Sender: FDA-Public Use
  Company Number: DEP_02460_2015

PATIENT
  Sex: Male
  Weight: 81.65 kg

DRUGS (16)
  1. GRALISE [Suspect]
     Active Substance: GABAPENTIN
     Indication: HEADACHE
     Dosage: SAMPLE PACK
     Route: 048
     Dates: start: 201304, end: 201412
  2. LOPRESSOR [Concomitant]
     Active Substance: METOPROLOL TARTRATE
  3. VALSARTAN. [Concomitant]
     Active Substance: VALSARTAN
  4. PROVENTIL HFA [Concomitant]
     Active Substance: ALBUTEROL SULFATE
  5. GRALISE [Suspect]
     Active Substance: GABAPENTIN
     Indication: OFF LABEL USE
     Dosage: SAMPLE PACK
     Route: 048
     Dates: start: 201304, end: 201412
  6. AMBIEN [Concomitant]
     Active Substance: ZOLPIDEM TARTRATE
  7. NORFLEX [Concomitant]
     Active Substance: ORPHENADRINE CITRATE
  8. SINGULAIR [Concomitant]
     Active Substance: MONTELUKAST SODIUM
  9. PERI-COLACE [Concomitant]
     Active Substance: CASANTHRANOL\DOCUSATE SODIUM
  10. ASPIRIN. [Concomitant]
     Active Substance: ASPIRIN
  11. METHOTREXATE [Concomitant]
     Active Substance: METHOTREXATE
  12. CIALIS [Concomitant]
     Active Substance: TADALAFIL
  13. SYMBICORT [Concomitant]
     Active Substance: BUDESONIDE\FORMOTEROL FUMARATE DIHYDRATE
  14. NORCO [Concomitant]
     Active Substance: ACETAMINOPHEN\HYDROCODONE BITARTRATE
  15. METFORMIN [Concomitant]
     Active Substance: METFORMIN HYDROCHLORIDE
  16. SPIRIVA [Concomitant]
     Active Substance: TIOTROPIUM BROMIDE MONOHYDRATE

REACTIONS (29)
  - Feeling abnormal [None]
  - Hyperhidrosis [None]
  - Influenza [None]
  - Erectile dysfunction [None]
  - Abasia [None]
  - Burning sensation [None]
  - Asthma [None]
  - Muscle spasms [None]
  - Hypotension [None]
  - Myalgia [None]
  - Radiculopathy [None]
  - Back pain [None]
  - Swelling [None]
  - Balance disorder [None]
  - Slow response to stimuli [None]
  - Drug effect decreased [None]
  - Dehydration [None]
  - Diabetes mellitus [None]
  - Memory impairment [None]
  - Fall [None]
  - Upper respiratory tract infection [None]
  - Impaired driving ability [None]
  - Dysuria [None]
  - Soft tissue mass [None]
  - Bone pain [None]
  - Blood pressure systolic increased [None]
  - Headache [None]
  - Syncope [None]
  - Joint stiffness [None]

NARRATIVE: CASE EVENT DATE: 2014
